FAERS Safety Report 5578660-1 (Version None)
Quarter: 2007Q4

REPORT INFORMATION
  Report Type: 
  Country: None (occurrence: None)
  Receive Date: 20071227
  Receipt Date: 20071211
  Transmission Date: 20080405
  Serious: Yes (Death)
  Sender: FDA-Public Use
  Company Number: 2007US001847

PATIENT
  Age: 79 Year
  Sex: Male

DRUGS (13)
  1. AMBISOME [Suspect]
     Indication: BRONCHOPULMONARY ASPERGILLOSIS
     Dosage: 120 MG, UID/QD, IV DRIP
     Route: 041
     Dates: start: 20070607, end: 20070608
  2. VANCOMYCIN [Suspect]
     Indication: PNEUMONIA
     Dosage: 1 G, UID/QD, IV DRIP
     Route: 041
     Dates: start: 20070607, end: 20070620
  3. CIPROXAN(CIPROFLOXACIN HYDROCHLORIDE) INJECTION [Suspect]
     Indication: PNEUMONIA
     Dosage: 600 MG, UID/QD, IV DRIP
     Route: 041
     Dates: start: 20070607, end: 20070620
  4. MEROPEN (MEROPENEM) INJECTION [Concomitant]
  5. VFEND (VORICONAZOLE) INJECTION [Concomitant]
  6. AMINO ACIDS/CARBOHYDRATES/MINERALS/VITAMINS [Concomitant]
  7. MULTAMIN (VITAMINS NOS) INJECTION [Concomitant]
  8. PREDOPA (DOPAMINE HYDROCHLORIDE) INJECTION [Concomitant]
  9. DORMICUM (MIDAZOLAM HYDROCHLORIDE) INJECTION [Concomitant]
  10. NOREPINEPHRINE (NOREPINEPHRINE) INJECTION [Concomitant]
  11. GASTER INJECTION [Concomitant]
  12. MINOCYCLINE HCL [Concomitant]
  13. OXYGEN (OXYGEN) INHALATION GAS [Concomitant]

REACTIONS (3)
  - DISSEMINATED INTRAVASCULAR COAGULATION [None]
  - PLATELET COUNT DECREASED [None]
  - PNEUMONIA [None]
